FAERS Safety Report 15654636 (Version 4)
Quarter: 2019Q1

REPORT INFORMATION
  Report Type: Spontaneous
  Country: FR (occurrence: FR)
  Receive Date: 20181126
  Receipt Date: 20190130
  Transmission Date: 20190417
  Serious: Yes (Death)
  Sender: FDA-Public Use
  Company Number: FR-ACCORD-093772

PATIENT
  Age: 72 Year
  Sex: Female

DRUGS (5)
  1. HOSPIRA [DOCETAXEL] [Suspect]
     Active Substance: DOCETAXEL
     Indication: INVASIVE DUCTAL BREAST CARCINOMA
     Route: 041
  2. CARBOPLATIN. [Suspect]
     Active Substance: CARBOPLATIN
     Indication: INVASIVE DUCTAL BREAST CARCINOMA
     Route: 042
     Dates: start: 20171219, end: 20171219
  3. AUGMENTIN [Concomitant]
     Active Substance: AMOXICILLIN\CLAVULANATE POTASSIUM
     Indication: SUBCUTANEOUS ABSCESS
     Route: 042
     Dates: start: 20171211, end: 20171225
  4. HERCEPTIN [Suspect]
     Active Substance: TRASTUZUMAB
     Indication: INVASIVE DUCTAL BREAST CARCINOMA
     Route: 042
     Dates: start: 20171219, end: 20171219
  5. OFLOCET [Concomitant]
     Active Substance: OFLOXACIN
     Indication: SUBCUTANEOUS ABSCESS
     Route: 048
     Dates: start: 20171215, end: 20171225

REACTIONS (4)
  - Off label use [Unknown]
  - Colitis ischaemic [Fatal]
  - Septic shock [Fatal]
  - Clostridium difficile colitis [Fatal]

NARRATIVE: CASE EVENT DATE: 20171223
